FAERS Safety Report 5625680-4 (Version None)
Quarter: 2008Q1

REPORT INFORMATION
  Report Type: 
  Country: None (occurrence: None)
  Receive Date: 20080207
  Receipt Date: 20080207
  Transmission Date: 20080703
  Serious: Yes (Other)
  Sender: FDA-Public Use
  Company Number: None

PATIENT
  Age: 46 Year
  Sex: Female
  Weight: 113.3993 kg

DRUGS (2)
  1. CITALOPRAM HYDROBROMIDE [Suspect]
     Indication: ANXIETY
     Dosage: 40MG DAILY PO
     Route: 048
     Dates: start: 20070813, end: 20070930
  2. CITALOPRAM HYDROBROMIDE [Suspect]
     Indication: DEPRESSION
     Dosage: 40MG DAILY PO
     Route: 048
     Dates: start: 20070813, end: 20070930

REACTIONS (3)
  - ASTHMA [None]
  - DYSPNOEA [None]
  - SUICIDAL IDEATION [None]
